FAERS Safety Report 10358624 (Version 1)
Quarter: 2014Q3

REPORT INFORMATION
  Report Type: Spontaneous
  Country: US (occurrence: US)
  Receive Date: 20140803
  Receipt Date: 20140803
  Transmission Date: 20150326
  Serious: No
  Sender: FDA-Public Use
  Company Number: US-009507513-1407USA013500

PATIENT
  Age: 57 Year
  Sex: Female

DRUGS (3)
  1. BEXAROTENE [Concomitant]
     Active Substance: BEXAROTENE
     Dosage: }300MG/M2
     Route: 048
  2. INTRON A [Suspect]
     Active Substance: INTERFERON ALFA-2B
     Indication: MYCOSIS FUNGOIDES
  3. ROMIDEPSIN [Concomitant]
     Active Substance: ROMIDEPSIN
     Dosage: 14 MG/M2, UNK

REACTIONS (1)
  - Treatment failure [Unknown]
